FAERS Safety Report 19811821 (Version 1)
Quarter: 2021Q3

REPORT INFORMATION
  Report Type: Report from Study
  Country: US (occurrence: US)
  Receive Date: 20210909
  Receipt Date: 20210909
  Transmission Date: 20211014
  Serious: Yes (Death, Other)
  Sender: FDA-Public Use
  Company Number: US-UCBSA-2021041735

PATIENT

DRUGS (1)
  1. LACOSAMIDE. [Suspect]
     Active Substance: LACOSAMIDE
     Indication: EPILEPSY
     Dosage: UNKNOWN DOSE AND FREQUENCY
     Route: 064

REACTIONS (4)
  - Maternal exposure during pregnancy [Unknown]
  - Sudden infant death syndrome [Fatal]
  - Premature baby [Unknown]
  - Maternal exposure before pregnancy [Unknown]
